FAERS Safety Report 6380717-2 (Version None)
Quarter: 2009Q3

REPORT INFORMATION
  Report Type: 
  Country: None (occurrence: None)
  Receive Date: 20090924
  Receipt Date: 20090914
  Transmission Date: 20100115
  Serious: Yes (Other)
  Sender: FDA-Public Use
  Company Number: 2009SP025094

PATIENT
  Age: 65 Year
  Sex: Male

DRUGS (1)
  1. EPTIFIBATIDE (S-P) [Suspect]
     Indication: DRUG USE FOR UNKNOWN INDICATION

REACTIONS (9)
  - AORTIC DISSECTION [None]
  - CARDIAC ARREST [None]
  - CARDIAC PERFORATION [None]
  - CARDIAC TAMPONADE [None]
  - CARDIOGENIC SHOCK [None]
  - CORONARY ARTERY THROMBOSIS [None]
  - HAEMODYNAMIC REBOUND [None]
  - MYOCARDIAL INFARCTION [None]
  - PERICARDIAL HAEMORRHAGE [None]
